FAERS Safety Report 9049998 (Version 1)
Quarter: 2013Q1

REPORT INFORMATION
  Report Type: Spontaneous
  Country: US (occurrence: US)
  Receive Date: 20130205
  Receipt Date: 20130205
  Transmission Date: 20140127
  Serious: No
  Sender: FDA-Public Use
  Company Number: US-GLAXOSMITHKLINE-A0958206A

PATIENT
  Sex: Female

DRUGS (4)
  1. ARIXTRA [Suspect]
     Indication: THROMBOSIS
     Dosage: 7.5MG UNKNOWN
     Route: 058
     Dates: start: 201012
  2. PROPANOLOL [Concomitant]
  3. OXYCONTIN [Concomitant]
  4. REMERON [Concomitant]

REACTIONS (3)
  - Injection site bruising [Recovering/Resolving]
  - Injection site pain [Recovering/Resolving]
  - Injection site swelling [Not Recovered/Not Resolved]
